FAERS Safety Report 10460235 (Version 1)
Quarter: 2014Q3

REPORT INFORMATION
  Report Type: Spontaneous
  Country: VE (occurrence: VE)
  Receive Date: 20140917
  Receipt Date: 20140917
  Transmission Date: 20150326
  Serious: Yes (Other)
  Sender: FDA-Public Use
  Company Number: PHHY2014VE120575

PATIENT
  Sex: Female

DRUGS (4)
  1. FORADIL [Suspect]
     Active Substance: FORMOTEROL FUMARATE
     Indication: TOBACCO USER
     Dosage: Q12H
     Route: 055
  2. MIFLONIDE [Suspect]
     Active Substance: BUDESONIDE
     Indication: OFF LABEL USE
  3. FORADIL [Suspect]
     Active Substance: FORMOTEROL FUMARATE
     Indication: OFF LABEL USE
  4. MIFLONIDE [Suspect]
     Active Substance: BUDESONIDE
     Indication: TOBACCO USER
     Dosage: 400 UG, Q12H
     Route: 055

REACTIONS (4)
  - Fatigue [Recovering/Resolving]
  - Dyspnoea [Recovering/Resolving]
  - Asthenia [Recovering/Resolving]
  - Asthmatic crisis [Recovering/Resolving]
